FAERS Safety Report 15797154 (Version 1)
Quarter: 2018Q4

REPORT INFORMATION
  Report Type: Spontaneous
  Country: US (occurrence: US)
  Receive Date: 20181231
  Receipt Date: 20181231
  Transmission Date: 20190205
  Serious: No
  Sender: FDA-Public Use
  Company Number: None

PATIENT

DRUGS (3)
  1. POTASSIUM CHLORIDE INJECTION (CONCENTRATE POTASSIUM CHLORIDE) [Suspect]
     Active Substance: POTASSIUM CHLORIDE
  2. POTASSIUM CHLORIDE INJECTION (CONCENTRATE POTASSIUM CHLORIDE) [Suspect]
     Active Substance: POTASSIUM CHLORIDE
  3. POTASSIUM CHLORIDE INJECTION (CONCENTRATE POTASSIUM CHLORIDE) [Suspect]
     Active Substance: POTASSIUM CHLORIDE

REACTIONS (1)
  - Product label confusion [None]
